FAERS Safety Report 10191269 (Version 1)
Quarter: 2014Q2

REPORT INFORMATION
  Report Type: Spontaneous
  Country: US (occurrence: None)
  Receive Date: 20140522
  Receipt Date: 20140522
  Transmission Date: 20141212
  Serious: No
  Sender: FDA-Public Use
  Company Number: None

PATIENT
  Age: 85 Year
  Sex: Female
  Weight: 46.72 kg

DRUGS (1)
  1. CYANOCOBALAMIN [Suspect]
     Indication: VITAMIN B12 DECREASED
     Dosage: INJECT 1 ML, EVERY 3 MONTHS, INTO THE MUSCLE
     Dates: start: 20140517, end: 20140517

REACTIONS (4)
  - Feeling abnormal [None]
  - Listless [None]
  - Faecal incontinence [None]
  - Product formulation issue [None]
